FAERS Safety Report 6097678-6 (Version None)
Quarter: 2009Q1

REPORT INFORMATION
  Report Type: 
  Country: None (occurrence: None)
  Receive Date: 20090227
  Receipt Date: 20090217
  Transmission Date: 20090719
  Serious: Yes (Death)
  Sender: FDA-Public Use
  Company Number: MY-PFIZER INC-2009171941

PATIENT

DRUGS (1)
  1. DILANTIN [Suspect]
     Indication: CONVULSION
     Dosage: 300 MG, 1X/DAY
     Route: 042
     Dates: start: 20080616

REACTIONS (2)
  - HYPOTENSION [None]
  - TACHYCARDIA [None]
